FAERS Safety Report 22063556 (Version 3)
Quarter: 2025Q3

REPORT INFORMATION
  Report Type: Report from Study
  Country: TH (occurrence: TH)
  Receive Date: 20230306
  Receipt Date: 20250707
  Transmission Date: 20251020
  Serious: Yes (Hospitalization)
  Sender: TAKEDA
  Company Number: TH-TAKEDA-2023TUS022547

PATIENT
  Age: 78 Year
  Sex: Female

DRUGS (1)
  1. VEDOLIZUMAB [Suspect]
     Active Substance: VEDOLIZUMAB
     Indication: Crohn^s disease
     Dates: start: 20230228, end: 20250227

REACTIONS (2)
  - Dyspnoea [Unknown]
  - Infusion site rash [Unknown]
